FAERS Safety Report 9418702 (Version 2)
Quarter: 2013Q3

REPORT INFORMATION
  Report Type: Report from Study
  Country: FR (occurrence: FR)
  Receive Date: 20130725
  Receipt Date: 20130816
  Transmission Date: 20140515
  Serious: Yes (Life-Threatening, Hospitalization)
  Sender: FDA-Public Use
  Company Number: FR-MPIJNJ-2013-05600

PATIENT
  Sex: 0

DRUGS (7)
  1. VELCADE [Suspect]
     Indication: PLASMA CELL MYELOMA
     Dosage: 2 MG, UNK
     Route: 042
     Dates: start: 20130531, end: 20130607
  2. DEXAMETHASONE [Suspect]
     Indication: PLASMA CELL MYELOMA
     Dosage: 20 MG, UNK
     Route: 048
     Dates: start: 20130601
  3. INEXIUM                            /01479302/ [Concomitant]
     Indication: PROPHYLAXIS AGAINST GASTROINTESTINAL ULCER
     Dosage: 20 MG, UNK
     Route: 048
  4. OXYNORM [Concomitant]
     Indication: PAIN
     Dosage: 15 MG, UNK
     Route: 048
  5. BACTRIM [Concomitant]
     Indication: PROPHYLAXIS
     Dosage: 400 MG, UNK
     Route: 048
  6. ZELITREX                           /01269701/ [Concomitant]
     Dosage: 1500 MG, UNK
     Route: 048
  7. AMOXICILLIN [Concomitant]
     Indication: LUNG DISORDER
     Dosage: 500 MG, UNK
     Route: 042

REACTIONS (1)
  - Shock haemorrhagic [Recovered/Resolved with Sequelae]
